FAERS Safety Report 9169904 (Version 1)
Quarter: 2013Q1

REPORT INFORMATION
  Report Type: Spontaneous
  Country: US (occurrence: None)
  Receive Date: 20130314
  Receipt Date: 20130314
  Transmission Date: 20140127
  Serious: Yes (Death, Life-Threatening, Hospitalization, Other)
  Sender: FDA-Public Use
  Company Number: None

PATIENT
  Age: 80 Year
  Sex: Male
  Weight: 81.65 kg

DRUGS (1)
  1. ZITHROMAX [Suspect]

REACTIONS (5)
  - Heart rate irregular [None]
  - Pneumonia [None]
  - Heart rate increased [None]
  - Aspiration [None]
  - Refusal of treatment by relative [None]
